FAERS Safety Report 8819697 (Version 3)
Quarter: 2012Q4

REPORT INFORMATION
  Report Type: 
  Country: JP (occurrence: JP)
  Receive Date: 20121001
  Receipt Date: 20121221
  Transmission Date: 20130627
  Serious: Yes (Hospitalization, Other)
  Sender: FDA-Public Use
  Company Number: JP-JNJFOC-20120912781

PATIENT
  Age: 80 Year
  Sex: Male

DRUGS (19)
  1. ZYRTEC [Suspect]
     Indication: PRURITUS
     Route: 048
     Dates: start: 20110920, end: 20111012
  2. ZYRTEC [Suspect]
     Indication: PRURITUS
     Route: 048
     Dates: end: 20110727
  3. ZYRTEC [Suspect]
     Indication: PEMPHIGOID
     Route: 048
     Dates: start: 20110920, end: 20111012
  4. ZYRTEC [Suspect]
     Indication: PEMPHIGOID
     Route: 048
     Dates: end: 20110727
  5. STEROIDS NOS [Suspect]
     Indication: PEMPHIGOID
     Route: 065
  6. ATARAX-P [Suspect]
     Indication: PRURITUS
     Route: 065
     Dates: start: 20111016, end: 20111016
  7. TAKEPRON [Suspect]
     Indication: PROPHYLAXIS
     Route: 048
     Dates: start: 20110915, end: 20111007
  8. PIPERACILLIN + TAZOBACTAM [Suspect]
     Indication: ENTEROCOLITIS
     Dosage: 3-6 grams
     Route: 042
     Dates: start: 20111014, end: 20111014
  9. PREDNISOLONE [Suspect]
     Indication: PEMPHIGOID
     Route: 048
  10. PREDNISOLONE [Suspect]
     Indication: PEMPHIGOID
     Route: 048
     Dates: start: 20110517
  11. WARFARIN [Suspect]
     Indication: DEEP VEIN THROMBOSIS
     Route: 048
     Dates: start: 20110708, end: 20111003
  12. FOIPAN [Suspect]
     Indication: AMYLASE INCREASED
     Route: 048
     Dates: start: 20110826, end: 20111007
  13. ALFAROL [Suspect]
     Indication: PROPHYLAXIS
     Route: 048
     Dates: start: 20110928, end: 20111005
  14. GASMOTIN [Suspect]
     Indication: PRODUCT USED FOR UNKNOWN INDICATION
     Route: 048
     Dates: start: 20110905, end: 20111007
  15. TOBRAMYCIN SULFATE [Suspect]
     Indication: LUNG ABSCESS
     Route: 042
     Dates: start: 20110729, end: 20111005
  16. TOBRAMYCIN SULFATE [Suspect]
     Indication: LUNG INFECTION PSEUDOMONAL
     Route: 042
     Dates: start: 20110729, end: 20111005
  17. PENTCILLIN [Suspect]
     Indication: LUNG ABSCESS
     Route: 042
     Dates: start: 20110803, end: 20111005
  18. PENTCILLIN [Suspect]
     Indication: LUNG INFECTION PSEUDOMONAL
     Route: 042
     Dates: start: 20110803, end: 20111005
  19. BIOFERMIN R [Concomitant]
     Indication: DIARRHOEA
     Dosage: 3-6 grams
     Route: 048
     Dates: start: 20110819, end: 20111026

REACTIONS (13)
  - Systemic lupus erythematosus [Recovered/Resolved]
  - Renal impairment [Recovering/Resolving]
  - Blood creatinine increased [Recovered/Resolved]
  - Nephritis [Recovered/Resolved]
  - Tubulointerstitial nephritis [Recovered/Resolved]
  - Rash [Recovered/Resolved]
  - Blood alkaline phosphatase increased [Recovering/Resolving]
  - Dermatitis [Unknown]
  - Pyrexia [Recovered/Resolved]
  - Diarrhoea [Recovered/Resolved]
  - Erythema [Recovered/Resolved]
  - Wrong drug administered [Unknown]
  - Off label use [Unknown]
